FAERS Safety Report 22102831 (Version 1)
Quarter: 2023Q1

REPORT INFORMATION
  Report Type: Spontaneous
  Country: US (occurrence: US)
  Receive Date: 20230316
  Receipt Date: 20230316
  Transmission Date: 20230418
  Serious: No
  Sender: FDA-Public Use
  Company Number: US-EPICPHARMA-US-2023EPCSPO00425

PATIENT
  Age: 51 Year
  Sex: Female

DRUGS (1)
  1. ESTRADIOL [Suspect]
     Active Substance: ESTRADIOL
     Indication: Hot flush
     Route: 065

REACTIONS (2)
  - Vulvovaginal pain [Unknown]
  - Wrong technique in product usage process [Unknown]
